FAERS Safety Report 4471846-9 (Version None)
Quarter: 2004Q4

REPORT INFORMATION
  Report Type: 
  Country: None (occurrence: None)
  Receive Date: 20041012
  Receipt Date: 20041006
  Transmission Date: 20050328
  Serious: Yes (Death, Life-Threatening, Other)
  Sender: FDA-Public Use
  Company Number: PHBS2004AT13336

PATIENT
  Age: 42 Month
  Sex: Male

DRUGS (14)
  1. CYCLOSPORINE [Suspect]
     Indication: STEM CELL TRANSPLANT
     Dosage: 3-5 MG/KG/D
     Route: 065
  2. CYCLOSPORINE [Suspect]
     Dosage: 3-5 MG/KG/D
     Route: 065
  3. BUSULFAN [Concomitant]
     Indication: STEM CELL TRANSPLANT
     Dosage: 3 MG/KG/D
     Route: 042
  4. CYCLOPHOSPHAMIDE [Concomitant]
     Indication: STEM CELL TRANSPLANT
     Dosage: 45 MG/KG/D
     Route: 042
  5. ATGAM [Concomitant]
     Indication: STEM CELL TRANSPLANT
     Dosage: 5 MG/KG/D
     Route: 042
  6. FOSCARNET [Concomitant]
     Dosage: 180 MG/KG/D
     Route: 065
  7. CIDOFOVIR [Concomitant]
     Dosage: 5 MG/KG EVERY 2 WEEKS
     Route: 065
  8. TACROLIMUS [Concomitant]
     Indication: STEM CELL TRANSPLANT
     Dosage: 0.05-0.1 MG/KG/D
     Route: 065
  9. METHYLPREDNISOLONE [Concomitant]
     Dosage: 1 MG/KG/D-0.5 MG/KG/D
  10. AZATHIOPRINE [Concomitant]
     Dosage: 50 - 25 MG/M2/D
  11. MYCOPHENOLATE MOFETIL [Concomitant]
     Dosage: 30-50 MG/KG/D
  12. DACLIZUMAB [Concomitant]
     Dosage: 1 MG/KG/D
  13. RITUXIMAB [Concomitant]
     Dosage: 375 MG/M2/D
  14. ALEMTUZUMAB [Concomitant]

REACTIONS (19)
  - BLOOD BILIRUBIN INCREASED [None]
  - BLOOD LACTATE DEHYDROGENASE INCREASED [None]
  - COLD AGGLUTININS POSITIVE [None]
  - COOMBS DIRECT TEST POSITIVE [None]
  - CYTOMEGALOVIRUS INFECTION [None]
  - DISSEMINATED INTRAVASCULAR COAGULATION [None]
  - EVAN'S SYNDROME [None]
  - GRAFT VERSUS HOST DISEASE [None]
  - HAEMOGLOBIN DECREASED [None]
  - HAEMOGLOBINURIA [None]
  - HAEMOLYTIC ANAEMIA [None]
  - HISTIOCYTOSIS HAEMATOPHAGIC [None]
  - HUMAN HERPESVIRUS 6 INFECTION [None]
  - INTRAVASCULAR HAEMOLYSIS [None]
  - LIVEDO RETICULARIS [None]
  - PLATELET COUNT DECREASED [None]
  - RASH MACULO-PAPULAR [None]
  - RED BLOOD CELL AGGLUTINATION [None]
  - THROMBOCYTOPENIA [None]
